FAERS Safety Report 15270433 (Version 2)
Quarter: 2018Q4

REPORT INFORMATION
  Report Type: Spontaneous
  Country: IT (occurrence: IT)
  Receive Date: 20180813
  Receipt Date: 20181002
  Transmission Date: 20190204
  Serious: Yes (Hospitalization)
  Sender: FDA-Public Use
  Company Number: IT-BAYER-2018-145944

PATIENT
  Age: 72 Year
  Sex: Female

DRUGS (1)
  1. GADOVIST [Suspect]
     Active Substance: GADOBUTROL
     Indication: CONTRAST MEDIA REACTION
     Dosage: 8 ML, PRN
     Route: 042
     Dates: start: 20180614, end: 20180614

REACTIONS (6)
  - Flushing [Recovered/Resolved]
  - Myoclonic epilepsy [Recovered/Resolved]
  - Hyperhidrosis [Recovered/Resolved]
  - Oedema [Recovered/Resolved]
  - Vomiting [Recovered/Resolved]
  - Aphasia [Unknown]

NARRATIVE: CASE EVENT DATE: 20180614
